FAERS Safety Report 10229628 (Version 1)
Quarter: 2014Q2

REPORT INFORMATION
  Report Type: Spontaneous
  Country: US (occurrence: US)
  Receive Date: 20140611
  Receipt Date: 20140611
  Transmission Date: 20141212
  Serious: No
  Sender: FDA-Public Use
  Company Number: US-ASTRAZENECA-2014SE38452

PATIENT
  Age: 74 Year
  Sex: Male
  Weight: 81.2 kg

DRUGS (3)
  1. NEXIUM [Suspect]
     Route: 048
     Dates: start: 2002
  2. NEXIUM [Suspect]
     Route: 048
  3. LISINOPRIL [Suspect]
     Indication: BLOOD PRESSURE
     Route: 048
     Dates: start: 2010

REACTIONS (2)
  - Gastrooesophageal reflux disease [Unknown]
  - Abdominal pain upper [Recovered/Resolved]
